FAERS Safety Report 13997858 (Version 6)
Quarter: 2017Q4

REPORT INFORMATION
  Report Type: Report from Study
  Country: US (occurrence: US)
  Receive Date: 20170921
  Receipt Date: 20171207
  Transmission Date: 20180321
  Serious: Yes (Hospitalization, Other)
  Sender: FDA-Public Use
  Company Number: US-TESARO, INC-US-2017TSO02892

PATIENT

DRUGS (3)
  1. ZEJULA [Suspect]
     Active Substance: NIRAPARIB
     Indication: OVARIAN CANCER
     Dosage: 300 MG, QD
     Route: 048
     Dates: start: 20170828
  2. ZEJULA [Suspect]
     Active Substance: NIRAPARIB
     Indication: MALIGNANT PERITONEAL NEOPLASM
     Dosage: 300 MG, QD
     Route: 048
  3. ZEJULA [Suspect]
     Active Substance: NIRAPARIB
     Dosage: 100 MG, QD
     Route: 048
     Dates: end: 20171115

REACTIONS (23)
  - Blood sodium decreased [Recovered/Resolved]
  - Headache [Recovered/Resolved]
  - Cough [Unknown]
  - Decreased appetite [Unknown]
  - Dry mouth [Unknown]
  - Seizure [Recovered/Resolved]
  - Ligament rupture [Not Recovered/Not Resolved]
  - Vitamin D decreased [Not Recovered/Not Resolved]
  - Nausea [Unknown]
  - Adverse drug reaction [Unknown]
  - Malaise [Not Recovered/Not Resolved]
  - Blood pressure increased [Recovered/Resolved]
  - Foot fracture [Unknown]
  - Abdominal pain upper [Not Recovered/Not Resolved]
  - Gastroenteritis viral [Not Recovered/Not Resolved]
  - Upper-airway cough syndrome [Not Recovered/Not Resolved]
  - Constipation [Unknown]
  - Disease progression [Not Recovered/Not Resolved]
  - Asthenia [Unknown]
  - Chills [Unknown]
  - Fatigue [Unknown]
  - Dehydration [Not Recovered/Not Resolved]
  - Vomiting [Not Recovered/Not Resolved]
